FAERS Safety Report 24815057 (Version 3)
Quarter: 2025Q1

REPORT INFORMATION
  Report Type: Spontaneous
  Country: IN (occurrence: IN)
  Receive Date: 20250107
  Receipt Date: 20250319
  Transmission Date: 20250409
  Serious: Yes (Other)
  Sender: PFIZER
  Company Number: IN-PFIZER INC-2020519399

PATIENT
  Age: 54 Year
  Sex: Male

DRUGS (5)
  1. SUTENT [Suspect]
     Active Substance: SUNITINIB MALATE
     Indication: Metastatic renal cell carcinoma
     Route: 048
     Dates: start: 20200820
  2. SUTENT [Suspect]
     Active Substance: SUNITINIB MALATE
     Route: 048
  3. SUTENT [Suspect]
     Active Substance: SUNITINIB MALATE
     Route: 048
  4. SUTENT [Suspect]
     Active Substance: SUNITINIB MALATE
     Route: 048
  5. SUTENT [Suspect]
     Active Substance: SUNITINIB MALATE
     Route: 048

REACTIONS (10)
  - Asterixis [Unknown]
  - Skin ulcer [Unknown]
  - Tongue ulceration [Unknown]
  - Eating disorder [Unknown]
  - Mouth ulceration [Unknown]
  - Palmar-plantar erythrodysaesthesia syndrome [Unknown]
  - Blood pressure increased [Unknown]
  - Oedema peripheral [Unknown]
  - Jaundice [Unknown]
  - Pain in extremity [Unknown]

NARRATIVE: CASE EVENT DATE: 20230615
